FAERS Safety Report 6139398-5 (Version None)
Quarter: 2009Q2

REPORT INFORMATION
  Report Type: 
  Country: None (occurrence: None)
  Receive Date: 20090401
  Receipt Date: 20090320
  Transmission Date: 20091009
  Serious: Yes (Hospitalization)
  Sender: FDA-Public Use
  Company Number: FR-PFIZER INC-2009187872

PATIENT

DRUGS (3)
  1. AMLODIPINE BESYLATE [Suspect]
     Route: 048
     Dates: start: 20081111, end: 20081212
  2. LASIX [Suspect]
     Route: 017
     Dates: start: 20081114, end: 20081212
  3. CLAMOXYL [Concomitant]
     Route: 042
     Dates: start: 20081112, end: 20081203

REACTIONS (3)
  - DERMATITIS EXFOLIATIVE [None]
  - EOSINOPHILIA [None]
  - RASH PUSTULAR [None]
